FAERS Safety Report 4406175-2 (Version None)
Quarter: 2004Q3

REPORT INFORMATION
  Report Type: 
  Country: None (occurrence: None)
  Receive Date: 20040723
  Receipt Date: 20040506
  Transmission Date: 20050211
  Serious: No
  Sender: FDA-Public Use
  Company Number: US-GLAXOSMITHKLINE-A0509831A

PATIENT
  Age: 63 Year
  Sex: Male

DRUGS (6)
  1. AVANDIA [Suspect]
     Dosage: 4MG PER DAY
     Route: 048
     Dates: start: 20031201
  2. WELLBUTRIN [Concomitant]
  3. GLUCOVANCE [Concomitant]
  4. HYDROCHLOROTHIAZIDE AND LISINOPRIL [Concomitant]
  5. QUININE [Concomitant]
  6. MULTIVITAMIN [Concomitant]

REACTIONS (4)
  - BLISTER [None]
  - BURNING SENSATION [None]
  - ERYTHEMA [None]
  - SKIN DISCOLOURATION [None]
